FAERS Safety Report 14266870 (Version 1)
Quarter: 2017Q4

REPORT INFORMATION
  Report Type: Spontaneous
  Country: AU (occurrence: AU)
  Receive Date: 20171211
  Receipt Date: 20171211
  Transmission Date: 20180321
  Serious: Yes (Hospitalization)
  Sender: FDA-Public Use
  Company Number: AU-UNICHEM PHARMACEUTICALS (USA) INC-UCM201712-000313

PATIENT
  Age: 15 Year
  Sex: Male
  Weight: 70 kg

DRUGS (17)
  1. QUETIAPINE. [Suspect]
     Active Substance: QUETIAPINE
  2. AMLODIPINE [Suspect]
     Active Substance: AMLODIPINE BESYLATE
  3. RAMIPRIL. [Suspect]
     Active Substance: RAMIPRIL
  4. VENLAFAXINE [Suspect]
     Active Substance: VENLAFAXINE HYDROCHLORIDE
  5. ROCURONIUM [Concomitant]
     Active Substance: ROCURONIUM BROMIDE
     Indication: PROPHYLAXIS
  6. DESVENLAFAXINE MODERATE RELEASE [Suspect]
     Active Substance: DESVENLAFAXINE
  7. FLUOXETINE [Suspect]
     Active Substance: FLUOXETINE HYDROCHLORIDE
  8. PROMETHAZINE [Suspect]
     Active Substance: PROMETHAZINE\PROMETHAZINE HYDROCHLORIDE
  9. FENTANYL. [Concomitant]
     Active Substance: FENTANYL
     Indication: PROPHYLAXIS
  10. ROCURONIUM [Concomitant]
     Active Substance: ROCURONIUM BROMIDE
  11. METHYLENE BLUE. [Concomitant]
     Active Substance: METHYLENE BLUE
  12. QUETIAPINE. [Suspect]
     Active Substance: QUETIAPINE
  13. LEVETIRACETAM. [Concomitant]
     Active Substance: LEVETIRACETAM
     Indication: SEIZURE
  14. LITHIUM. [Suspect]
     Active Substance: LITHIUM
  15. MIDAZOLAM [Concomitant]
     Active Substance: MIDAZOLAM HYDROCHLORIDE
     Indication: PROPHYLAXIS
  16. METHYLENE BLUE. [Concomitant]
     Active Substance: METHYLENE BLUE
     Route: 040
  17. METHYLENE BLUE. [Concomitant]
     Active Substance: METHYLENE BLUE

REACTIONS (3)
  - Overdose [Unknown]
  - Hypotension [Unknown]
  - Shock [Unknown]
